FAERS Safety Report 6123699-0 (Version None)
Quarter: 2009Q1

REPORT INFORMATION
  Report Type: 
  Country: None (occurrence: None)
  Receive Date: 20090319
  Receipt Date: 20090318
  Transmission Date: 20090719
  Serious: Yes (Other)
  Sender: FDA-Public Use
  Company Number: ES-WYE-G03343009

PATIENT
  Age: 86 Year
  Sex: Male

DRUGS (10)
  1. TAZOCEL [Suspect]
     Indication: PNEUMONIA
     Route: 042
     Dates: start: 20081223, end: 20081229
  2. METFORMIN HCL [Concomitant]
     Indication: TYPE 2 DIABETES MELLITUS
     Route: 048
  3. LANACORDIN [Concomitant]
     Indication: ATRIAL FIBRILLATION
     Route: 048
  4. TAVANIC [Suspect]
     Dosage: UNKNOWN
     Route: 048
     Dates: start: 20081217, end: 20081221
  5. SEGURIL [Concomitant]
     Indication: CARDIAC FAILURE
     Route: 048
  6. SERETIDE [Concomitant]
     Indication: CHRONIC OBSTRUCTIVE PULMONARY DISEASE
     Route: 055
  7. SINTROM [Concomitant]
     Dosage: UNKNOWN
     Route: 048
  8. SPIRIVA [Concomitant]
     Indication: CHRONIC OBSTRUCTIVE PULMONARY DISEASE
     Dosage: UNKNOWN
     Route: 055
  9. PANTOPRAZOLE SODIUM [Concomitant]
     Route: 048
  10. LACTOBACILLUS ACIDOPHILUS [Suspect]
     Dosage: UNKNOWN
     Route: 048
     Dates: start: 20081217, end: 20081221

REACTIONS (1)
  - MIXED LIVER INJURY [None]
